FAERS Safety Report 8437571-4 (Version None)
Quarter: 2012Q2

REPORT INFORMATION
  Report Type: 
  Country: None (occurrence: None)
  Receive Date: 20120614
  Receipt Date: 20120409
  Transmission Date: 20120825
  Serious: No
  Sender: FDA-Public Use
  Company Number: US-AMGEN-USASP2012022235

PATIENT
  Age: 89 Year
  Sex: Female

DRUGS (3)
  1. VITAMIN B-12 [Concomitant]
     Dosage: UNK
  2. PROLIA [Suspect]
     Indication: OSTEOPOROSIS POSTMENOPAUSAL
     Dosage: UNK
     Dates: start: 20110901
  3. CALCIUM [Concomitant]
     Dosage: UNK

REACTIONS (3)
  - URTICARIA [None]
  - RASH PRURITIC [None]
  - RASH GENERALISED [None]
